FAERS Safety Report 6479633-7 (Version None)
Quarter: 2009Q4

REPORT INFORMATION
  Report Type: 
  Country: None (occurrence: None)
  Receive Date: 20091204
  Receipt Date: 20091204
  Transmission Date: 20100525
  Serious: Yes (Hospitalization)
  Sender: FDA-Public Use
  Company Number: None

PATIENT
  Age: 26 Year
  Sex: Female

DRUGS (1)
  1. FLECAINIDE ACETATE [Suspect]
     Indication: TACHYCARDIA FOETAL
     Dosage: 200 MG - QD - ORAL; 300 MG - QD - ORAL
     Route: 048

REACTIONS (4)
  - CAESAREAN SECTION [None]
  - PRE-ECLAMPSIA [None]
  - PREMATURE BABY [None]
  - PREMATURE RUPTURE OF MEMBRANES [None]
